FAERS Safety Report 4523480-X (Version None)
Quarter: 2004Q4

REPORT INFORMATION
  Report Type: 
  Country: None (occurrence: None)
  Receive Date: 20041210
  Receipt Date: 20041202
  Transmission Date: 20050328
  Serious: Yes (Life-Threatening, Hospitalization, Disabling)
  Sender: FDA-Public Use
  Company Number: US-MERCK-0412USA00451

PATIENT
  Age: 56 Year
  Sex: Male

DRUGS (9)
  1. VIOXX [Suspect]
     Route: 048
     Dates: start: 20011101, end: 20030502
  2. TRICOR [Concomitant]
     Route: 065
  3. METOPROLOL [Concomitant]
     Route: 065
  4. ASPIRIN [Concomitant]
     Route: 065
  5. KLOR-CON [Concomitant]
     Route: 065
  6. PRAVACHOL [Concomitant]
     Route: 065
  7. [THERAPY UNSPECIFIED] [Concomitant]
     Route: 065
  8. PLAVIX [Concomitant]
     Route: 065
  9. NITROGLYCERIN [Concomitant]
     Route: 065

REACTIONS (1)
  - CARDIAC DISORDER [None]
